FAERS Safety Report 8554474-5 (Version None)
Quarter: 2012Q3

REPORT INFORMATION
  Report Type: 
  Country: None (occurrence: None)
  Receive Date: 20120731
  Receipt Date: 20120725
  Transmission Date: 20120928
  Serious: Yes (Other)
  Sender: FDA-Public Use
  Company Number: US-BAYER-2012-075202

PATIENT
  Age: 61 Year
  Sex: Female

DRUGS (11)
  1. ZOCOR [Concomitant]
     Dosage: 5 MG, UNK
  2. PREDNISONE [Concomitant]
     Dosage: 1 MG, UNK
  3. VALIUM [Concomitant]
     Dosage: 2 MG, UNK
  4. BACLOFEN [Concomitant]
     Dosage: 10 MG, UNK
  5. NUVIGIL [Concomitant]
     Dosage: 250 MG, UNK
  6. BETASERON [Suspect]
     Indication: PRODUCT USED FOR UNKNOWN INDICATION
     Dosage: 0.25 MG, QOD
     Route: 058
  7. INDERAL [Concomitant]
     Dosage: 80 MG, UNK
  8. TIZANIDINE HYDROCHLORIDE [Concomitant]
     Dosage: 4 MG, UNK
  9. PLAVIX [Concomitant]
     Dosage: 75 MG, UNK
  10. TRIAMTERENE AND HYDROCHLOROTHIAZIDE [Concomitant]
     Dosage: 37.5-25
  11. PERCOCET [Concomitant]
     Dosage: 2.5-325

REACTIONS (4)
  - HAEMOGLOBIN DECREASED [None]
  - BLOOD IRON DECREASED [None]
  - THROMBOSIS [None]
  - POLYP [None]
